FAERS Safety Report 15260314 (Version 2)
Quarter: 2018Q4

REPORT INFORMATION
  Report Type: Spontaneous
  Country: DE (occurrence: DE)
  Receive Date: 20180809
  Receipt Date: 20180905
  Transmission Date: 20190204
  Serious: Yes (Hospitalization, Disabling, Other)
  Sender: FDA-Public Use
  Company Number: DE-TEVA-2018-DE-935990

PATIENT
  Sex: Female
  Weight: 86 kg

DRUGS (4)
  1. ASS ACTAVIS 100 MG TABLETTEN [Concomitant]
  2. AMLODIPIN-RATIOPHARM 5 MG N TABLETTEN [Concomitant]
     Active Substance: AMLODIPINE BESYLATE
  3. VALSARTAN-RATIOPHARM 80 MG FILMTABLETTEN [Suspect]
     Active Substance: VALSARTAN
     Dosage: 1 DOSAGE FORMS DAILY;
     Route: 048
     Dates: start: 2016, end: 201806
  4. SIMVASTATIN-RATIOPHARM 10 MG FILMTABLETTEN [Concomitant]

REACTIONS (1)
  - Invasive breast carcinoma [Not Recovered/Not Resolved]

NARRATIVE: CASE EVENT DATE: 2017
